FAERS Safety Report 9819013 (Version 1)
Quarter: 2014Q1

REPORT INFORMATION
  Report Type: Spontaneous
  Country: TR (occurrence: None)
  Receive Date: 20140113
  Receipt Date: 20140113
  Transmission Date: 20141002
  Serious: Yes (Other)
  Sender: FDA-Public Use
  Company Number: TR-014233

PATIENT
  Age: 11 Year
  Sex: Male

DRUGS (1)
  1. SOMATROPIN [Suspect]
     Indication: GROWTH HORMONE DEFICIENCY

REACTIONS (14)
  - Affective disorder [None]
  - Insomnia [None]
  - Logorrhoea [None]
  - Energy increased [None]
  - Psychomotor hyperactivity [None]
  - Euphoric mood [None]
  - Disturbance in attention [None]
  - Suicidal ideation [None]
  - Educational problem [None]
  - Hallucination, auditory [None]
  - Delusion of grandeur [None]
  - Depression [None]
  - Pressure of speech [None]
  - Irritability [None]
